FAERS Safety Report 8477392-X (Version None)
Quarter: 2012Q2

REPORT INFORMATION
  Report Type: 
  Country: None (occurrence: None)
  Receive Date: 20120629
  Receipt Date: 20120619
  Transmission Date: 20120825
  Serious: Yes (Other)
  Sender: FDA-Public Use
  Company Number: US-SANOFI-AVENTIS-2012SA044780

PATIENT
  Sex: Male

DRUGS (2)
  1. PLAVIX [Suspect]
  2. ASPIRIN [Suspect]

REACTIONS (1)
  - INJURY [None]
